FAERS Safety Report 17272774 (Version 1)
Quarter: 2020Q1

REPORT INFORMATION
  Report Type: Spontaneous
  Country: US (occurrence: US)
  Receive Date: 20200115
  Receipt Date: 20200115
  Transmission Date: 20200409
  Serious: Yes (Hospitalization, Other)
  Sender: FDA-Public Use
  Company Number: US-AMNEAL PHARMACEUTICALS-2019-AMRX-02424

PATIENT
  Age: 41 Year
  Sex: Female
  Weight: 121 kg

DRUGS (9)
  1. ELAGOLIX [Suspect]
     Active Substance: ELAGOLIX
     Indication: UTERINE LEIOMYOMA
     Dosage: 300 MILLIGRAM, 2X/DAY
     Route: 048
     Dates: start: 20170314, end: 20170830
  2. DOCUSATE SOD [Concomitant]
     Indication: CONSTIPATION PROPHYLAXIS
     Dosage: 100 MILLIGRAM, AS NEEDED
     Route: 048
     Dates: start: 20160722
  3. ALEVE [Concomitant]
     Active Substance: NAPROXEN SODIUM
     Indication: DYSMENORRHOEA
     Dosage: 440 MILLIGRAM, AS NEEDED
     Route: 065
     Dates: start: 20170313
  4. IBUPROFEN. [Concomitant]
     Active Substance: IBUPROFEN
     Indication: DYSMENORRHOEA
     Dosage: UNK
     Route: 048
     Dates: start: 2014
  5. ACTIVELLA [Suspect]
     Active Substance: ESTRADIOL\NORETHINDRONE ACETATE
     Indication: UTERINE LEIOMYOMA
     Dosage: UNK
     Route: 048
     Dates: start: 20170314, end: 20170830
  6. LIPITOR [Concomitant]
     Active Substance: ATORVASTATIN CALCIUM
     Indication: BLOOD CHOLESTEROL INCREASED
     Dosage: 10 MILLIGRAM, 1X/DAY
     Route: 048
     Dates: start: 20170615, end: 20170617
  7. FERROUS GLUCONATE [Concomitant]
     Active Substance: FERROUS GLUCONATE
     Indication: ANAEMIA
     Dosage: 240 MILLIGRAM, 3X/DAY
     Route: 048
     Dates: start: 20160722
  8. LIPITOR [Concomitant]
     Active Substance: ATORVASTATIN CALCIUM
     Dosage: 10 MILLIGRAM, 1X/DAY
     Route: 048
     Dates: start: 20170703
  9. DOXYCYCLINE HYCLATE. [Concomitant]
     Active Substance: DOXYCYCLINE HYCLATE
     Indication: VAGINAL INFECTION
     Dosage: UNK, 1X/DAY
     Route: 048
     Dates: start: 20180226, end: 20180311

REACTIONS (1)
  - Menorrhagia [Recovered/Resolved]

NARRATIVE: CASE EVENT DATE: 20180307
